FAERS Safety Report 23407868 (Version 1)
Quarter: 2024Q1

REPORT INFORMATION
  Report Type: Spontaneous
  Country: US (occurrence: US)
  Receive Date: 20240117
  Receipt Date: 20240117
  Transmission Date: 20240410
  Serious: No
  Sender: FDA-Public Use
  Company Number: US-AJANTA-2023AJA00174

PATIENT
  Age: 66 Year
  Sex: Male

DRUGS (2)
  1. ALMOTRIPTAN [Suspect]
     Active Substance: ALMOTRIPTAN
     Indication: Migraine
     Dates: start: 202306
  2. ALMOTRIPTAN [Suspect]
     Active Substance: ALMOTRIPTAN
     Dates: start: 2023

REACTIONS (5)
  - Product odour abnormal [Unknown]
  - Product blister packaging issue [Unknown]
  - Therapeutic product effect delayed [Unknown]
  - Product packaging difficult to open [Unknown]
  - Product substitution issue [Unknown]

NARRATIVE: CASE EVENT DATE: 20230601
